FAERS Safety Report 20495233 (Version 1)
Quarter: 2022Q1

REPORT INFORMATION
  Report Type: Report from Study
  Country: MX (occurrence: MX)
  Receive Date: 20220221
  Receipt Date: 20220221
  Transmission Date: 20220423
  Serious: Yes (Other)
  Sender: FDA-Public Use
  Company Number: MX-NOVARTISPH-NVSC2022MX039022

PATIENT
  Sex: Female
  Weight: 82 kg

DRUGS (1)
  1. IMATINIB [Suspect]
     Active Substance: IMATINIB
     Indication: Chronic myeloid leukaemia
     Dosage: UNK (9 YEARS AGO)
     Route: 048

REACTIONS (5)
  - Diabetes mellitus [Unknown]
  - Hypothyroidism [Unknown]
  - Hypersomnia-bulimia syndrome [Unknown]
  - Sinus tachycardia [Unknown]
  - Hypertension [Unknown]
